FAERS Safety Report 21752167 (Version 1)
Quarter: 2022Q4

REPORT INFORMATION
  Report Type: Spontaneous
  Country: TR (occurrence: TR)
  Receive Date: 20221220
  Receipt Date: 20221220
  Transmission Date: 20230113
  Serious: Yes (Other)
  Sender: FDA-Public Use
  Company Number: TR-ALKEM LABORATORIES LIMITED-TR-ALKEM-2022-14175

PATIENT
  Age: 15 Day
  Sex: Male

DRUGS (7)
  1. SIROLIMUS [Suspect]
     Active Substance: SIROLIMUS
     Indication: Hyperinsulinism
     Dosage: 0.5 MILLIGRAM/SQ. METER, QD (GRADUALLY INCREASED)
     Route: 065
  2. SIROLIMUS [Suspect]
     Active Substance: SIROLIMUS
     Dosage: 2 MILLIGRAM/SQ. METER, QD
     Route: 065
  3. DIAZOXIDE [Concomitant]
     Active Substance: DIAZOXIDE
     Indication: Hyperinsulinism
     Dosage: UNK
     Route: 065
  4. OCTREOTIDE [Concomitant]
     Active Substance: OCTREOTIDE
     Indication: Hyperinsulinism
     Dosage: UNK
     Route: 065
  5. GLUCAGON [Concomitant]
     Active Substance: GLUCAGON
     Indication: Hyperinsulinism
     Dosage: UNK
     Route: 065
  6. DEXTROSE [Concomitant]
     Active Substance: DEXTROSE
     Indication: Hyperinsulinism
     Dosage: 18 MILLIGRAM/KILOGRAM MIN
     Route: 065
  7. DEXTROSE [Concomitant]
     Active Substance: DEXTROSE
     Dosage: UNK TAPERED
     Route: 065

REACTIONS (3)
  - Renal failure [Recovered/Resolved]
  - Sepsis [Unknown]
  - Hepatic failure [Recovered/Resolved]
